FAERS Safety Report 6319135-1 (Version None)
Quarter: 2009Q3

REPORT INFORMATION
  Report Type: 
  Country: None (occurrence: None)
  Receive Date: 20090821
  Receipt Date: 20080805
  Transmission Date: 20100115
  Serious: No
  Sender: FDA-Public Use
  Company Number: US-ABBOTT-08P-163-0469050-00

PATIENT
  Sex: Male

DRUGS (2)
  1. NIASPAN [Suspect]
     Indication: DRUG USE FOR UNKNOWN INDICATION
     Dosage: OLD FORMULATION
  2. NIASPAN [Suspect]
     Dosage: NEW FORMULATION ON 3000MG AT BED TIME

REACTIONS (1)
  - FLUSHING [None]
